FAERS Safety Report 9467228 (Version 2)
Quarter: 2013Q3

REPORT INFORMATION
  Report Type: Spontaneous
  Country: US (occurrence: US)
  Receive Date: 20130821
  Receipt Date: 20130821
  Transmission Date: 20140515
  Serious: No
  Sender: FDA-Public Use
  Company Number: US-JNJFOC-20130717132

PATIENT
  Sex: Male

DRUGS (1)
  1. LISTERINE MOUTHWASH COOLMINT [Suspect]
     Indication: PRODUCT USED FOR UNKNOWN INDICATION
     Dosage: ABOUT HALF A BOTTLE
     Route: 048

REACTIONS (3)
  - Vomiting [Unknown]
  - Accidental overdose [Unknown]
  - Cough [Unknown]
